FAERS Safety Report 16593226 (Version 2)
Quarter: 2019Q4

REPORT INFORMATION
  Report Type: Spontaneous
  Country: DE (occurrence: DE)
  Receive Date: 20190718
  Receipt Date: 20191030
  Transmission Date: 20200122
  Serious: Yes (Hospitalization)
  Sender: FDA-Public Use
  Company Number: DE-B.I. PHARMACEUTICALS,INC./RIDGEFIELD-2019-BI-029688

PATIENT
  Age: 55 Year
  Sex: Female

DRUGS (3)
  1. VARGATEF [Suspect]
     Active Substance: NINTEDANIB
     Indication: LUNG ADENOCARCINOMA STAGE IV
     Route: 065
     Dates: start: 201905
  2. TAXOTERE [Suspect]
     Active Substance: DOCETAXEL
     Indication: PRODUCT USED FOR UNKNOWN INDICATION
     Route: 065
     Dates: start: 201905
  3. DOCETAXEL. [Suspect]
     Active Substance: DOCETAXEL
     Indication: PRODUCT USED FOR UNKNOWN INDICATION
     Route: 065

REACTIONS (10)
  - Dyspnoea [Unknown]
  - Cough [Unknown]
  - Dyspnoea [Unknown]
  - Liver function test increased [Unknown]
  - Pulmonary embolism [Unknown]
  - Haemoptysis [Unknown]
  - Flushing [Unknown]
  - Cough [Unknown]
  - Metastases to liver [Unknown]
  - Vomiting [Unknown]

NARRATIVE: CASE EVENT DATE: 201905
